FAERS Safety Report 8171728-5 (Version None)
Quarter: 2012Q1

REPORT INFORMATION
  Report Type: 
  Country: None (occurrence: None)
  Receive Date: 20120228
  Receipt Date: 20120213
  Transmission Date: 20120608
  Serious: Yes (Other)
  Sender: FDA-Public Use
  Company Number: CHPA2012US003540

PATIENT
  Age: 69 Year
  Sex: Female

DRUGS (1)
  1. EXCEDRIN EXTRA STRENGTH TABLETS [Suspect]
     Indication: PAIN
     Dosage: 2 DF, PRN
     Route: 048

REACTIONS (1)
  - GASTRIC HAEMORRHAGE [None]
